FAERS Safety Report 18886942 (Version 1)
Quarter: 2021Q1

REPORT INFORMATION
  Report Type: Spontaneous
  Country: CA (occurrence: CA)
  Receive Date: 20210212
  Receipt Date: 20210212
  Transmission Date: 20210420
  Serious: Yes (Life-Threatening, Hospitalization, Disabling)
  Sender: FDA-Public Use
  Company Number: CA-BAYER-2021-050689

PATIENT
  Age: 4 Year
  Sex: Female
  Weight: 12 kg

DRUGS (25)
  1. NEXAVAR [Suspect]
     Active Substance: SORAFENIB
     Indication: PLEUROPULMONARY BLASTOMA
     Dosage: 100 MG, UNK
     Route: 048
  2. ACETAMINOPHEN. [Concomitant]
     Active Substance: ACETAMINOPHEN
  3. HEPARIN CALCIUM [Concomitant]
     Active Substance: HEPARIN CALCIUM
  4. LIDOCAINE. [Concomitant]
     Active Substance: LIDOCAINE
  5. DIPHENHYDRAMINE. [Concomitant]
     Active Substance: DIPHENHYDRAMINE
  6. VINCRISTINE SULFATE. [Suspect]
     Active Substance: VINCRISTINE SULFATE
     Indication: PLEUROPULMONARY BLASTOMA
     Dosage: 0.9 MG, UNK
     Route: 042
  7. ACETAMINOPHEN. [Concomitant]
     Active Substance: ACETAMINOPHEN
  8. METOCLOPRAMIDE. [Concomitant]
     Active Substance: METOCLOPRAMIDE
  9. TRIMETHOPRIM SULFAMETHOXAZOLE [Concomitant]
     Active Substance: SULFAMETHOXAZOLE\TRIMETHOPRIM
  10. MESNA. [Concomitant]
     Active Substance: MESNA
  11. MACROGOL [Concomitant]
     Active Substance: POLYETHYLENE GLYCOLS
     Dosage: UNK
  12. COSMEGEN [Suspect]
     Active Substance: DACTINOMYCIN
     Indication: PLEUROPULMONARY BLASTOMA
     Dosage: 885 MG, UNK
     Route: 042
  13. DIMENHYDRINATE. [Concomitant]
     Active Substance: DIMENHYDRINATE
  14. HYDROCORTISONE. [Concomitant]
     Active Substance: HYDROCORTISONE
  15. VANCOMYCIN [Concomitant]
     Active Substance: VANCOMYCIN
  16. FILGRASTIM [Concomitant]
     Active Substance: FILGRASTIM
  17. MORPHINE [Concomitant]
     Active Substance: MORPHINE
  18. MACROGOL [Concomitant]
     Active Substance: POLYETHYLENE GLYCOLS
     Dosage: UNK
  19. IFOSFAMIDE. [Suspect]
     Active Substance: IFOSFAMIDE
     Indication: PLEUROPULMONARY BLASTOMA
     Dosage: 1770 MG, UNK
     Route: 042
  20. DOXORUBICIN HYDROCHLORIDE. [Suspect]
     Active Substance: DOXORUBICIN HYDROCHLORIDE
     Indication: PLEUROPULMONARY BLASTOMA
     Dosage: 18 MG, UNK
     Route: 042
  21. ENOXAPARIN [Concomitant]
     Active Substance: ENOXAPARIN
  22. OLANZAPINE. [Concomitant]
     Active Substance: OLANZAPINE
  23. ONDANSETRON [Concomitant]
     Active Substance: ONDANSETRON
  24. ZINECARD [DEXRAZOXANE] [Concomitant]
     Route: 042
  25. DEXAMETHASONE. [Concomitant]
     Active Substance: DEXAMETHASONE

REACTIONS (1)
  - Febrile neutropenia [None]
